FAERS Safety Report 9697449 (Version 1)
Quarter: 2013Q4

REPORT INFORMATION
  Report Type: Spontaneous
  Country: US (occurrence: None)
  Receive Date: 20131119
  Receipt Date: 20131119
  Transmission Date: 20140711
  Serious: Yes (Disabling)
  Sender: FDA-Public Use
  Company Number: None

PATIENT
  Age: 45 Year
  Sex: Female
  Weight: 104.33 kg

DRUGS (2)
  1. CIPRO [Suspect]
     Indication: INFECTION
     Dosage: 1 TWICE DAILY TAKEN BY MOUTH
     Route: 048
     Dates: start: 20131109, end: 20131116
  2. CIPRO [Suspect]
     Indication: ABSCESS
     Dosage: 1 TWICE DAILY TAKEN BY MOUTH
     Route: 048
     Dates: start: 20131109, end: 20131116

REACTIONS (4)
  - Middle insomnia [None]
  - Arthralgia [None]
  - Activities of daily living impaired [None]
  - Tendon disorder [None]
